FAERS Safety Report 23185271 (Version 1)
Quarter: 2023Q4

REPORT INFORMATION
  Report Type: Spontaneous
  Country: PL (occurrence: PL)
  Receive Date: 20231115
  Receipt Date: 20231115
  Transmission Date: 20240110
  Serious: Yes (Other)
  Sender: FDA-Public Use
  Company Number: PL-002147023-PHHY2017PL192149

PATIENT
  Age: 6 Year
  Sex: Male

DRUGS (7)
  1. CYTARABINE [Suspect]
     Active Substance: CYTARABINE
     Indication: Acute myeloid leukaemia
     Dosage: UNK, CYCLIC (HIGH-DOSE)
     Route: 065
  2. ETOPOSIDE [Suspect]
     Active Substance: ETOPOSIDE
     Indication: Acute myeloid leukaemia
     Dosage: (1 CYCLICAL)
     Route: 065
  3. FILGRASTIM [Suspect]
     Active Substance: FILGRASTIM
     Indication: Acute myeloid leukaemia
     Dosage: UNK, CYCLIC
     Route: 065
  4. FLUDARABINE [Suspect]
     Active Substance: FLUDARABINE PHOSPHATE
     Indication: Acute myeloid leukaemia
     Dosage: UNK, CYCLIC
     Route: 065
  5. IDARUBICIN [Suspect]
     Active Substance: IDARUBICIN
     Indication: Acute myeloid leukaemia
     Dosage: UNK, CYCLIC
     Route: 065
  6. ETOPOSIDE [Concomitant]
     Active Substance: ETOPOSIDE
     Indication: Acute myeloid leukaemia
     Dosage: UNK, CYCLIC
     Route: 065
  7. MITOXANTRONE [Concomitant]
     Active Substance: MITOXANTRONE HYDROCHLORIDE
     Indication: Acute myeloid leukaemia
     Dosage: UNK, CYCLIC
     Route: 065

REACTIONS (8)
  - Clostridium difficile colitis [Unknown]
  - Stomatitis [Unknown]
  - Pyrexia [Unknown]
  - Candida infection [Unknown]
  - Bone marrow failure [Unknown]
  - Klebsiella infection [Unknown]
  - Transaminases increased [Unknown]
  - Escherichia bacteraemia [Unknown]
